FAERS Safety Report 17766940 (Version 1)
Quarter: 2020Q2

REPORT INFORMATION
  Report Type: Spontaneous
  Country: IT (occurrence: IT)
  Receive Date: 20200511
  Receipt Date: 20200511
  Transmission Date: 20200714
  Serious: Yes (Other)
  Sender: FDA-Public Use
  Company Number: IT-MYLANLABS-2020M1045885

PATIENT
  Sex: Male

DRUGS (2)
  1. FINASTERIDE MYLAN 5 MG FILMTABLETTEN [Suspect]
     Active Substance: FINASTERIDE
     Indication: BENIGN PROSTATIC HYPERPLASIA
     Dosage: 1 DOSAGE FORM
     Route: 048
  2. BE-TOTAL [Concomitant]
     Indication: PRODUCT USED FOR UNKNOWN INDICATION
     Dosage: UNK
     Route: 048

REACTIONS (4)
  - Cerebral ischaemia [Unknown]
  - Somnolence [Unknown]
  - Wrong technique in product usage process [Unknown]
  - Refusal of treatment by patient [Unknown]
